FAERS Safety Report 7996404-0 (Version None)
Quarter: 2011Q4

REPORT INFORMATION
  Report Type: 
  Country: None (occurrence: None)
  Receive Date: 20111220
  Receipt Date: 20111213
  Transmission Date: 20120403
  Serious: Yes (Death)
  Sender: FDA-Public Use
  Company Number: PHHY2011FR109217

PATIENT
  Sex: Male

DRUGS (11)
  1. MIDAZOLAM HCL [Concomitant]
     Dates: start: 20110404
  2. PENTOTHAL [Concomitant]
     Dates: start: 20110406
  3. AMIKACIN [Concomitant]
     Dates: start: 20110410, end: 20110411
  4. KEPPRA [Suspect]
     Dates: start: 20110404, end: 20110412
  5. VANCOMYCIN HCL [Suspect]
     Dates: start: 20110410, end: 20110415
  6. NEXIUM [Suspect]
     Dates: start: 20110404, end: 20110412
  7. AMOXICILLIN TRIHYDRATE [Suspect]
     Dates: start: 20110412, end: 20110415
  8. NOREPINEPHRINE BITARTRATE [Concomitant]
     Dates: start: 20110404
  9. SUFENTA PRESERVATIVE FREE [Concomitant]
     Dates: start: 20110404
  10. ACTRAPID HUMAN [Concomitant]
  11. PIPERACILLIN AND TAZOBACTAM [Concomitant]
     Dates: start: 20110410, end: 20110411

REACTIONS (6)
  - PANCREATITIS ACUTE [None]
  - CYTOLYTIC HEPATITIS [None]
  - CHOLESTASIS [None]
  - RASH [None]
  - HEPATITIS [None]
  - RENAL FAILURE [None]
